FAERS Safety Report 4280672-5 (Version None)
Quarter: 2004Q1

REPORT INFORMATION
  Report Type: 
  Country: None (occurrence: None)
  Receive Date: 20040127
  Receipt Date: 20040114
  Transmission Date: 20041129
  Serious: Yes (Hospitalization)
  Sender: FDA-Public Use
  Company Number: 2003IM000976

PATIENT
  Age: 50 Year
  Sex: Female
  Weight: 77.1115 kg

DRUGS (7)
  1. ACTIMMUNE [Suspect]
     Indication: OVARIAN CANCER
     Dosage: 100 UG;TIW;SUBCUTANEOUS
     Route: 058
     Dates: start: 20030811, end: 20030908
  2. CARBOPLATIN [Suspect]
     Indication: OVARIAN CANCER
     Dosage: 750 MG;Q3W; INTRAVENOUS
     Route: 042
     Dates: start: 20030811, end: 20030904
  3. PACLITAXEL [Suspect]
     Indication: OVARIAN CANCER
     Dosage: 306 MG; Q3W; INTRAVENOUS
     Route: 042
     Dates: start: 20030811, end: 20030904
  4. COUMADIN [Concomitant]
  5. COMPAZINE [Concomitant]
  6. LORTAB [Concomitant]
  7. PREMARIN [Concomitant]

REACTIONS (9)
  - HYPERTENSION [None]
  - IMPLANT SITE REACTION [None]
  - INJECTION SITE INFECTION [None]
  - INJECTION SITE SWELLING [None]
  - NEUTROPENIA [None]
  - PAIN [None]
  - PRODUCTIVE COUGH [None]
  - PYREXIA [None]
  - TENDERNESS [None]
